FAERS Safety Report 6569426-4 (Version None)
Quarter: 2010Q1

REPORT INFORMATION
  Report Type: 
  Country: None (occurrence: None)
  Receive Date: 20100202
  Receipt Date: 20100202
  Transmission Date: 20100710
  Serious: Yes (Life-Threatening)
  Sender: FDA-Public Use
  Company Number: None

PATIENT
  Sex: Female
  Weight: 81.1939 kg

DRUGS (2)
  1. CARVEDILOL [Suspect]
     Indication: CARDIAC FAILURE CONGESTIVE
     Dosage: 2-3 6-09 TO 12-04-09 TWICE DAILY
     Dates: start: 20090826, end: 20091204
  2. CARVEDILOL [Suspect]
     Indication: HYPERTENSION
     Dosage: 2-3 6-09 TO 12-04-09 TWICE DAILY
     Dates: start: 20090826, end: 20091204

REACTIONS (10)
  - DEPRESSED LEVEL OF CONSCIOUSNESS [None]
  - DISORIENTATION [None]
  - FLUID INTAKE REDUCED [None]
  - HYPOAESTHESIA [None]
  - HYPOPHAGIA [None]
  - INSOMNIA [None]
  - PAIN IN EXTREMITY [None]
  - PERIPHERAL COLDNESS [None]
  - SENSATION OF HEAVINESS [None]
  - UNEVALUABLE EVENT [None]
